FAERS Safety Report 24417534 (Version 1)
Quarter: 2024Q4

REPORT INFORMATION
  Report Type: Spontaneous
  Country: FR (occurrence: FR)
  Receive Date: 20241009
  Receipt Date: 20241009
  Transmission Date: 20250115
  Serious: Yes (Other)
  Sender: ORGANON
  Company Number: FR-ORGANON-O2410FRA000403

PATIENT
  Age: 59 Year
  Sex: Female

DRUGS (1)
  1. BETAMETHASONE DIPROPIONATE\BETAMETHASONE SODIUM PHOSPHATE [Suspect]
     Active Substance: BETAMETHASONE DIPROPIONATE\BETAMETHASONE SODIUM PHOSPHATE
     Indication: Arthralgia
     Dosage: 2 DOSAGE FORM
     Dates: start: 20240924

REACTIONS (8)
  - Hypoxia [Unknown]
  - Brain fog [Unknown]
  - Feeling abnormal [Unknown]
  - Memory impairment [Unknown]
  - Disturbance in attention [Unknown]
  - Headache [Unknown]
  - Agitation [Unknown]
  - Loss of personal independence in daily activities [Unknown]

NARRATIVE: CASE EVENT DATE: 20240901
